FAERS Safety Report 4854810-7 (Version None)
Quarter: 2005Q4

REPORT INFORMATION
  Report Type: 
  Country: None (occurrence: None)
  Receive Date: 20051213
  Receipt Date: 20051130
  Transmission Date: 20060501
  Serious: Yes (Death, Other)
  Sender: FDA-Public Use
  Company Number: 2005161952

PATIENT
  Age: 41 Year
  Sex: Male

DRUGS (1)
  1. ATARAX [Suspect]
     Indication: ANXIETY
     Dosage: 25 MG ORAL
     Route: 048
     Dates: start: 20051013

REACTIONS (6)
  - CARDIO-RESPIRATORY ARREST [None]
  - CLONUS [None]
  - EYE DISORDER [None]
  - HYPOVOLAEMIA [None]
  - MALNUTRITION [None]
  - SINUS BRADYCARDIA [None]
